FAERS Safety Report 5393705-X (Version None)
Quarter: 2007Q3

REPORT INFORMATION
  Report Type: 
  Country: None (occurrence: None)
  Receive Date: 20070723
  Receipt Date: 20070716
  Transmission Date: 20080115
  Serious: Yes (Death)
  Sender: FDA-Public Use
  Company Number: US-ASTRAZENECA-2006UW19003

PATIENT
  Age: 7171 Day
  Sex: Male

DRUGS (18)
  1. SEROQUEL [Suspect]
     Indication: TOURETTE'S DISORDER
     Route: 048
     Dates: start: 19981112, end: 20000520
  2. SEROQUEL [Suspect]
     Indication: OBSESSIVE-COMPULSIVE DISORDER
     Route: 048
     Dates: start: 19981112, end: 20000520
  3. SEROQUEL [Suspect]
     Route: 048
     Dates: start: 20000520, end: 20010117
  4. SEROQUEL [Suspect]
     Route: 048
     Dates: start: 20000520, end: 20010117
  5. SEROQUEL [Suspect]
     Route: 048
     Dates: start: 20021211
  6. SEROQUEL [Suspect]
     Route: 048
     Dates: start: 20021211
  7. SEROQUEL [Suspect]
     Dates: start: 20000821, end: 20030226
  8. SEROQUEL [Suspect]
     Dates: start: 20000821, end: 20030226
  9. RISPERDAL [Suspect]
     Dates: start: 20000504, end: 20030226
  10. TEGRETOL [Concomitant]
  11. LUVOX [Concomitant]
  12. TRILEPTAL [Concomitant]
  13. TENEX [Concomitant]
  14. RITALIN [Concomitant]
  15. MINOCYCLINE HCL [Concomitant]
  16. DEPAKOTE [Concomitant]
     Dosage: 250 MG AM, 325 MG HS
     Dates: start: 19980420
  17. CATAPRES [Concomitant]
  18. ZOLOFT [Concomitant]

REACTIONS (1)
  - PANCREATITIS ACUTE [None]
